FAERS Safety Report 7676485-4 (Version None)
Quarter: 2011Q3

REPORT INFORMATION
  Report Type: 
  Country: None (occurrence: None)
  Receive Date: 20110805
  Receipt Date: 20110721
  Transmission Date: 20111222
  Serious: Yes (Hospitalization, Other)
  Sender: FDA-Public Use
  Company Number: 2011MA009286

PATIENT
  Age: 75 Year
  Sex: Female

DRUGS (8)
  1. CLONAZEPAM [Concomitant]
  2. HYRDOCHLORORTHIAZIDE [Concomitant]
  3. RISPERIDONE [Concomitant]
  4. PHENYTOIN [Suspect]
     Indication: CONVULSION
     Dosage: 250 MG; QD
  5. ESCITALOPRAM [Concomitant]
  6. PHENOBARBITAL TAB [Concomitant]
  7. DONEPEZIL HCL [Concomitant]
  8. HALOPERIDOL [Concomitant]

REACTIONS (14)
  - SINUS BRADYCARDIA [None]
  - STUPOR [None]
  - DEPRESSED LEVEL OF CONSCIOUSNESS [None]
  - HYPOREFLEXIA [None]
  - DRUG LEVEL INCREASED [None]
  - THROMBOCYTOPENIA [None]
  - HYPOALBUMINAEMIA [None]
  - NEUROTOXICITY [None]
  - NEUTROPENIA [None]
  - UNRESPONSIVE TO STIMULI [None]
  - MENTAL STATUS CHANGES [None]
  - PUPILS UNEQUAL [None]
  - HYPOTHERMIA [None]
  - GRAND MAL CONVULSION [None]
